FAERS Safety Report 9369598 (Version 2)
Quarter: 2013Q3

REPORT INFORMATION
  Report Type: Spontaneous
  Country: US (occurrence: US)
  Receive Date: 20130626
  Receipt Date: 20130717
  Transmission Date: 20140515
  Serious: No
  Sender: FDA-Public Use
  Company Number: US-PFIZER INC-2013190401

PATIENT
  Age: 52 Year
  Sex: Male
  Weight: 72.56 kg

DRUGS (8)
  1. LYRICA [Suspect]
     Indication: NEURALGIA
     Dosage: 100 MG, 2X/DAY
     Dates: start: 201306, end: 201306
  2. LYRICA [Suspect]
     Indication: DIABETIC NEUROPATHY
     Dosage: 100 MG, 3X/DAY
     Dates: start: 201306
  3. LANTUS [Concomitant]
     Indication: DIABETES MELLITUS
     Dosage: UNK
  4. ACTOS [Concomitant]
     Indication: DIABETES MELLITUS
     Dosage: UNK
  5. GLIMEPIRIDE [Concomitant]
     Indication: DIABETES MELLITUS
     Dosage: UNK
  6. KLONOPIN [Concomitant]
     Indication: PANIC ATTACK
     Dosage: UNK
  7. KLONOPIN [Concomitant]
     Indication: ANXIETY
  8. HYDROCODONE [Concomitant]
     Indication: INTERVERTEBRAL DISC DEGENERATION
     Dosage: UNK

REACTIONS (1)
  - Drug ineffective [Unknown]
